FAERS Safety Report 20488766 (Version 1)
Quarter: 2022Q1

REPORT INFORMATION
  Report Type: Spontaneous
  Country: US (occurrence: US)
  Receive Date: 20220218
  Receipt Date: 20220218
  Transmission Date: 20220423
  Serious: No
  Sender: FDA-Public Use
  Company Number: US-SA-SAC20220214001457

PATIENT
  Sex: Female

DRUGS (12)
  1. DUPIXENT [Suspect]
     Active Substance: DUPILUMAB
     Route: 058
     Dates: start: 20211222
  2. PATADAY [Concomitant]
     Active Substance: OLOPATADINE HYDROCHLORIDE
  3. VENLAFAXINE [Concomitant]
     Active Substance: VENLAFAXINE HYDROCHLORIDE
  4. ESCITALOPRAM OXALATE [Concomitant]
     Active Substance: ESCITALOPRAM OXALATE
  5. PIMECROLIMUS [Concomitant]
     Active Substance: PIMECROLIMUS
  6. ATORVASTATIN CALCIUM [Concomitant]
     Active Substance: ATORVASTATIN CALCIUM
  7. FAMCICLOVIR [Concomitant]
     Active Substance: FAMCICLOVIR
  8. OLOPATADINE [Concomitant]
     Active Substance: OLOPATADINE
  9. AZELASTINE [Concomitant]
     Active Substance: AZELASTINE
  10. CERAVE HEALING [Concomitant]
     Active Substance: PETROLATUM
  11. COQ10 [ASCORBIC ACID;BETACAROTENE;CUPRIC OXIDE;MANGANESE SULFATE;SELEN [Concomitant]
  12. HERBALS\TURMERIC [Concomitant]
     Active Substance: HERBALS\TURMERIC
     Dosage: 450MG-50MG

REACTIONS (2)
  - Pruritus [Not Recovered/Not Resolved]
  - Nodule [Not Recovered/Not Resolved]
